FAERS Safety Report 10033431 (Version 1)
Quarter: 2014Q1

REPORT INFORMATION
  Report Type: Spontaneous
  Country: US (occurrence: US)
  Receive Date: 20140325
  Receipt Date: 20140325
  Transmission Date: 20141002
  Serious: No
  Sender: FDA-Public Use
  Company Number: US-009507513-1403USA009591

PATIENT
  Age: 73 Year
  Sex: Male

DRUGS (1)
  1. ZIOPTAN [Suspect]
     Dosage: 1 DROP EACH EYE ONCE DAILY
     Route: 047

REACTIONS (3)
  - Wrong technique in drug usage process [Unknown]
  - Drug prescribing error [Unknown]
  - No adverse event [Unknown]
